FAERS Safety Report 9827952 (Version 2)
Quarter: 2014Q3

REPORT INFORMATION
  Report Type: Spontaneous
  Country: US (occurrence: US)
  Receive Date: 20140117
  Receipt Date: 20140814
  Transmission Date: 20150326
  Serious: Yes (Hospitalization, Other)
  Sender: FDA-Public Use
  Company Number: US-009507513-1401USA004954

PATIENT
  Sex: Female
  Weight: 56.7 kg

DRUGS (1)
  1. NUVARING [Suspect]
     Active Substance: ETHINYL ESTRADIOL\ETONOGESTREL
     Indication: CONTRACEPTION
     Dosage: 0.12-0.015MG/24HR
     Route: 067
     Dates: start: 20110228

REACTIONS (13)
  - Protein C increased [Unknown]
  - Kyphosis [Unknown]
  - Anxiety disorder [Unknown]
  - Acute myocardial infarction [Unknown]
  - Injury [Unknown]
  - Obsessive-compulsive disorder [Unknown]
  - Neck pain [Recovered/Resolved]
  - Chest pain [Unknown]
  - Headache [Unknown]
  - Axillary pain [Recovered/Resolved]
  - Fatigue [Unknown]
  - Chest discomfort [Unknown]
  - Fatigue [Unknown]

NARRATIVE: CASE EVENT DATE: 201206
